FAERS Safety Report 13062171 (Version 2)
Quarter: 2016Q4

REPORT INFORMATION
  Report Type: Spontaneous
  Country: GB (occurrence: GB)
  Receive Date: 20161226
  Receipt Date: 20161227
  Transmission Date: 20170207
  Serious: Yes (Other)
  Sender: FDA-Public Use
  Company Number: GB-TEVA-714453ACC

PATIENT
  Age: 60 Year
  Sex: Female

DRUGS (1)
  1. NAPROXEN. [Suspect]
     Active Substance: NAPROXEN
     Indication: ARTHRITIS
     Dosage: 500 MILLIGRAM DAILY;

REACTIONS (5)
  - Haemorrhage [Recovered/Resolved]
  - Anaemia [Recovering/Resolving]
  - Oesophageal ulcer [Recovering/Resolving]
  - Haematemesis [Recovered/Resolved]
  - Loss of consciousness [Recovered/Resolved]

NARRATIVE: CASE EVENT DATE: 20151020
